FAERS Safety Report 24204920 (Version 3)
Quarter: 2024Q3

REPORT INFORMATION
  Report Type: Spontaneous
  Country: US (occurrence: US)
  Receive Date: 20240813
  Receipt Date: 20240919
  Transmission Date: 20241017
  Serious: No
  Sender: PFIZER
  Company Number: US-PFIZER INC-202400231958

PATIENT
  Age: 14 Year
  Sex: Male

DRUGS (1)
  1. GENOTROPIN [Suspect]
     Active Substance: SOMATROPIN
     Dosage: 1.6 MG MON THRU SAT
     Route: 058

REACTIONS (4)
  - Expired device used [Unknown]
  - Device power source issue [Unknown]
  - Device information output issue [Unknown]
  - Off label use [Unknown]
